FAERS Safety Report 11477121 (Version 1)
Quarter: 2015Q3

REPORT INFORMATION
  Report Type: Spontaneous
  Country: CA (occurrence: CA)
  Receive Date: 20150909
  Receipt Date: 20150909
  Transmission Date: 20151125
  Serious: Yes (Hospitalization, Disabling)
  Sender: FDA-Public Use
  Company Number: CA-TEVA-591871ACC

PATIENT
  Age: 8 Year
  Sex: Male
  Weight: 15 kg

DRUGS (49)
  1. VINCRISTINE SULFATE INJECTION USP [Suspect]
     Active Substance: VINCRISTINE SULFATE
     Route: 042
  2. AMOXICILLIN/CLAVULANIC ACID [Concomitant]
     Active Substance: AMOXICILLIN\CLAVULANIC ACID
  3. LORAZEPAM. [Concomitant]
     Active Substance: LORAZEPAM
  4. POTASSIUM CHLORIDE. [Concomitant]
     Active Substance: POTASSIUM CHLORIDE
  5. PREDNISONE. [Concomitant]
     Active Substance: PREDNISONE
  6. ZINECARD [Concomitant]
     Active Substance: DEXRAZOXANE HYDROCHLORIDE
     Route: 042
  7. DIMENHYDRINATE. [Concomitant]
     Active Substance: DIMENHYDRINATE
  8. LEUCOVORIN. [Concomitant]
     Active Substance: LEUCOVORIN
  9. MESNA FOR INJECTION [Concomitant]
     Active Substance: MESNA
     Route: 042
  10. METHOTREXATE [Concomitant]
     Active Substance: METHOTREXATE
  11. PIPERACILLIN/TAZOBACTAM [Concomitant]
     Active Substance: PIPERACILLIN SODIUM\TAZOBACTAM SODIUM
  12. FLUTICASONE [Concomitant]
     Active Substance: FLUTICASONE\FLUTICASONE PROPIONATE
  13. LANSOPRAZOLE. [Concomitant]
     Active Substance: LANSOPRAZOLE
  14. MELATONIN [Concomitant]
     Active Substance: MELATONIN
  15. MERCAPTOPURINE. [Concomitant]
     Active Substance: MERCAPTOPURINE
  16. METRONIDAZOLE. [Concomitant]
     Active Substance: METRONIDAZOLE
  17. RISPERIDONE. [Concomitant]
     Active Substance: RISPERIDONE
  18. SALBUTAMOL [Concomitant]
     Active Substance: ALBUTEROL
  19. ACETAMINOPHEN. [Concomitant]
     Active Substance: ACETAMINOPHEN
  20. CYCLOPHOSPHAMIDE. [Concomitant]
     Active Substance: CYCLOPHOSPHAMIDE
  21. GRANULOCYTE COLONY STIMULATING FACTOR (G-CSF) [Concomitant]
  22. METHYLPREDNISOLONE NOS [Concomitant]
     Active Substance: METHYLPREDNISOLONE OR METHYLPREDNISOLONE ACETATE
  23. METOCLOPRAMIDE. [Concomitant]
     Active Substance: METOCLOPRAMIDE
  24. PYRIDOXINE [Concomitant]
     Active Substance: PYRIDOXINE
  25. TIMENTIN [Concomitant]
     Active Substance: CLAVULANATE POTASSIUM\TICARCILLIN DISODIUM
     Route: 042
  26. VANCOMYCIN [Concomitant]
     Active Substance: VANCOMYCIN
  27. AMLODIPINE [Concomitant]
     Active Substance: AMLODIPINE BESYLATE
  28. DIPHENHYDRAMINE. [Concomitant]
     Active Substance: DIPHENHYDRAMINE
  29. ETOPOSIDE INJECTION, USP [Concomitant]
     Active Substance: ETOPOSIDE
  30. MORPHINE [Concomitant]
     Active Substance: MORPHINE
  31. VITAMIN K [Concomitant]
     Active Substance: PHYTONADIONE
  32. CLOXACILLIN [Concomitant]
     Active Substance: CLOXACILLIN
  33. CYTARABINE INJECTION [Concomitant]
     Active Substance: CYTARABINE
  34. DEXAMETHASONE. [Concomitant]
     Active Substance: DEXAMETHASONE
  35. FUROSEMIDE. [Concomitant]
     Active Substance: FUROSEMIDE
  36. L-ASPARAGINASE [Concomitant]
     Active Substance: ASPARAGINASE
     Route: 030
  37. UREA. [Concomitant]
     Active Substance: UREA
  38. VINCRISTINE SULFATE INJECTION USP [Suspect]
     Active Substance: VINCRISTINE SULFATE
     Indication: ACUTE LYMPHOCYTIC LEUKAEMIA
     Route: 042
  39. ALLOPURINOL. [Concomitant]
     Active Substance: ALLOPURINOL
  40. CEPHALEXIN. [Concomitant]
     Active Substance: CEPHALEXIN
  41. DOCUSATE SODIUM. [Concomitant]
     Active Substance: DOCUSATE SODIUM
  42. DOXORUBICIN LIPOSOMAL [Concomitant]
     Active Substance: DOXORUBICIN
  43. HYDROCORTISONE. [Concomitant]
     Active Substance: HYDROCORTISONE
  44. ONDANSETRON [Concomitant]
     Active Substance: ONDANSETRON
  45. PENTAMIDINE ISETHIONATE [Concomitant]
     Active Substance: PENTAMIDINE ISETHIONATE
  46. SULFAMETHOXAZOLE AND TRIMETHOPRIM [Concomitant]
     Active Substance: SULFAMETHOXAZOLE\TRIMETHOPRIM
  47. TOBRAMYCIN INJECTION USP [Concomitant]
  48. ENOXAPARIN [Concomitant]
     Active Substance: ENOXAPARIN
  49. RANITIDINE [Concomitant]
     Active Substance: RANITIDINE\RANITIDINE HYDROCHLORIDE

REACTIONS (3)
  - Muscular weakness [Unknown]
  - Pain in extremity [Unknown]
  - Tendon injury [Unknown]
